FAERS Safety Report 25333150 (Version 1)
Quarter: 2025Q2

REPORT INFORMATION
  Report Type: Report from Study
  Country: KR (occurrence: KR)
  Receive Date: 20250519
  Receipt Date: 20250519
  Transmission Date: 20250717
  Serious: Yes (Other)
  Sender: ABBVIE
  Company Number: KR-ABBVIE-6282751

PATIENT
  Age: 77 Year
  Sex: Male
  Weight: 61 kg

DRUGS (48)
  1. VENCLEXTA [Suspect]
     Active Substance: VENETOCLAX
     Indication: Acute myeloid leukaemia
     Route: 048
     Dates: start: 20250208
  2. VENCLEXTA [Suspect]
     Active Substance: VENETOCLAX
     Indication: Acute myeloid leukaemia
     Route: 048
     Dates: start: 20250206, end: 20250206
  3. VENCLEXTA [Suspect]
     Active Substance: VENETOCLAX
     Indication: Acute myeloid leukaemia
     Route: 048
     Dates: start: 20250207, end: 20250207
  4. VENCLEXTA [Suspect]
     Active Substance: VENETOCLAX
     Indication: Acute myeloid leukaemia
     Route: 048
     Dates: start: 20250205, end: 20250205
  5. MELATONIN [Concomitant]
     Active Substance: MELATONIN
     Indication: Insomnia
     Dosage: PR
     Route: 048
     Dates: start: 20250321, end: 20250403
  6. METOCLOPRAMIDE HYDROCHLORIDE [Concomitant]
     Active Substance: METOCLOPRAMIDE HYDROCHLORIDE
     Indication: Nausea
     Route: 042
     Dates: start: 20250215, end: 20250307
  7. LEVOFLOXACIN [Concomitant]
     Active Substance: LEVOFLOXACIN
     Indication: Pulmonary sepsis
     Route: 042
     Dates: start: 20250124, end: 20250227
  8. LEVOFLOXACIN [Concomitant]
     Active Substance: LEVOFLOXACIN
     Indication: Pulmonary sepsis
     Route: 048
     Dates: start: 20250228
  9. LASIX [Concomitant]
     Active Substance: FUROSEMIDE
     Indication: Cardiac failure
     Route: 048
     Dates: start: 20250204, end: 20250318
  10. Samnam loperamide [Concomitant]
     Indication: Diarrhoea
     Route: 048
     Dates: start: 20250502
  11. Mucosta sr [Concomitant]
     Indication: Abdominal pain upper
     Route: 048
     Dates: start: 20250413
  12. ALLOPURINOL [Concomitant]
     Active Substance: ALLOPURINOL
     Indication: Prophylaxis
     Route: 048
     Dates: start: 20250203, end: 20250212
  13. Hepa merz [Concomitant]
     Indication: Liver function test abnormal
     Route: 042
     Dates: start: 20250224, end: 20250304
  14. Solondo [Concomitant]
     Indication: Nasal crusting
     Route: 048
     Dates: start: 20250325, end: 20250429
  15. Solondo [Concomitant]
     Indication: Nasal crusting
     Route: 048
     Dates: start: 20250203, end: 20250212
  16. Fedulow [Concomitant]
     Indication: Prophylaxis
     Dosage: SUSPENTION
     Route: 048
     Dates: start: 20250403, end: 20250501
  17. VFEND [Concomitant]
     Active Substance: VORICONAZOLE
     Indication: Pulmonary sepsis
     Route: 048
     Dates: start: 20250305, end: 20250429
  18. VFEND [Concomitant]
     Active Substance: VORICONAZOLE
     Indication: Pulmonary sepsis
     Dosage: UNIT DOSE: 1.8VIAL
     Route: 042
     Dates: start: 20250221, end: 20250303
  19. Vizadakin [Concomitant]
     Indication: Acute myeloid leukaemia
     Route: 042
     Dates: start: 20250318, end: 20250324
  20. Vizadakin [Concomitant]
     Indication: Acute myeloid leukaemia
     Route: 042
     Dates: start: 20250205, end: 20250211
  21. PRUCALOPRIDE SUCCINATE [Concomitant]
     Active Substance: PRUCALOPRIDE SUCCINATE
     Indication: Constipation
     Route: 048
     Dates: start: 20250322, end: 20250410
  22. ALLELOCK [Concomitant]
     Active Substance: OLOPATADINE HYDROCHLORIDE
     Indication: Nasal crusting
     Route: 048
     Dates: start: 20250203, end: 20250326
  23. Casfung [Concomitant]
     Indication: Pyrexia
     Route: 042
     Dates: start: 20250128, end: 20250220
  24. ACETYLCYSTEINE [Concomitant]
     Active Substance: ACETYLCYSTEINE
     Indication: Pulmonary sepsis
     Dosage: 100MG/ML 10ML/A
     Route: 042
     Dates: start: 20250124
  25. Green cough [Concomitant]
     Indication: Pulmonary sepsis
     Route: 048
     Dates: start: 20250124, end: 20250307
  26. Green cough [Concomitant]
     Indication: Pulmonary sepsis
     Route: 048
     Dates: start: 20250420, end: 20250507
  27. ALDACTONE [Concomitant]
     Active Substance: SPIRONOLACTONE
     Indication: Cardiac failure
     Route: 048
     Dates: start: 20250204, end: 20250318
  28. QUETIAPINE FUMARATE [Concomitant]
     Active Substance: QUETIAPINE FUMARATE
     Indication: Insomnia
     Route: 048
     Dates: start: 20250306, end: 20250326
  29. RACECADOTRIL [Concomitant]
     Active Substance: RACECADOTRIL
     Indication: Diarrhoea
     Route: 048
     Dates: start: 20250430, end: 20250506
  30. Vacrax [Concomitant]
     Indication: Infection prophylaxis
     Dosage: (VACRAX TAB 200MG)
     Route: 048
     Dates: start: 20250205
  31. Daewoong ursa b [Concomitant]
     Indication: Liver function test abnormal
     Route: 048
     Dates: start: 20250224, end: 20250303
  32. SULFAMETHOXAZOLE\TRIMETHOPRIM [Concomitant]
     Active Substance: SULFAMETHOXAZOLE\TRIMETHOPRIM
     Indication: Infection prophylaxis
     Route: 048
     Dates: start: 20250205
  33. Esomezol [Concomitant]
     Indication: Gastrointestinal disorder prophylaxis
     Route: 048
     Dates: start: 20250306, end: 20250307
  34. Esomezol [Concomitant]
     Indication: Gastrointestinal disorder prophylaxis
     Route: 048
     Dates: start: 20250203, end: 20250212
  35. LENOGRASTIM [Concomitant]
     Active Substance: LENOGRASTIM
     Indication: Neutrophil count decreased
     Route: 042
     Dates: start: 20250403, end: 20250421
  36. Dulackhan easy [Concomitant]
     Indication: Constipation
     Route: 048
     Dates: start: 20250320, end: 20250410
  37. LENOGRASTIM [Concomitant]
     Active Substance: LENOGRASTIM
     Indication: Acute myeloid leukaemia
     Dosage: INJ 100MCG
     Route: 042
     Dates: start: 20250213
  38. RAMOSETRON HYDROCHLORIDE [Concomitant]
     Active Substance: RAMOSETRON HYDROCHLORIDE
     Indication: Prophylaxis of nausea and vomiting
     Dosage: NJ 0.3MG (AMP)
     Route: 042
     Dates: start: 20250205
  39. Fotagel [Concomitant]
     Indication: Diarrhoea
     Dosage: SUSP 20ML
     Route: 048
     Dates: start: 20250428
  40. Alzygen [Concomitant]
     Indication: Abdominal pain upper
     Route: 048
     Dates: start: 20250307, end: 20250326
  41. METOCLOPRAMIDE HYDROCHLORIDE [Concomitant]
     Active Substance: METOCLOPRAMIDE HYDROCHLORIDE
     Indication: Nausea
     Route: 048
     Dates: start: 20250308, end: 20250320
  42. Elroton [Concomitant]
     Indication: Cardiac failure
     Route: 048
     Dates: start: 20250204, end: 20250318
  43. Yuhan meropen [Concomitant]
     Indication: Pyrexia
     Route: 042
     Dates: start: 20250203, end: 20250221
  44. Godex [Concomitant]
     Indication: Liver function test abnormal
     Route: 048
     Dates: start: 20250224, end: 20250414
  45. Riperidon [Concomitant]
     Indication: Delirium
     Route: 048
     Dates: start: 20250224, end: 20250320
  46. Tapocin [Concomitant]
     Indication: Pulmonary sepsis
     Route: 042
     Dates: start: 20250202, end: 20250213
  47. Megerol [Concomitant]
     Indication: Decreased appetite
     Dosage: SUSP 10ML
     Route: 048
     Dates: start: 20250217, end: 20250506
  48. HARNAL [Concomitant]
     Active Substance: TAMSULOSIN HYDROCHLORIDE
     Indication: Dysuria
     Route: 048
     Dates: start: 20250421

REACTIONS (1)
  - Pulmonary embolism [Not Recovered/Not Resolved]

NARRATIVE: CASE EVENT DATE: 20250509
